FAERS Safety Report 7401832-8 (Version None)
Quarter: 2011Q2

REPORT INFORMATION
  Report Type: 
  Country: None (occurrence: None)
  Receive Date: 20110408
  Receipt Date: 20110216
  Transmission Date: 20111010
  Serious: Yes (Other)
  Sender: FDA-Public Use
  Company Number: US-BAYER-2010-003159

PATIENT
  Sex: Female
  Weight: 49 kg

DRUGS (3)
  1. YASMIN [Suspect]
     Dosage: UNK
     Route: 048
     Dates: start: 20071201, end: 20080401
  2. YASMIN [Suspect]
     Indication: PRODUCT USED FOR UNKNOWN INDICATION
     Dosage: UNK
     Dates: start: 20040501, end: 20040901
  3. YASMIN [Suspect]
     Dosage: UNK
     Dates: start: 20060401, end: 20070201

REACTIONS (5)
  - CHOLECYSTITIS [None]
  - ABDOMINAL PAIN [None]
  - ANXIETY [None]
  - CHOLELITHIASIS [None]
  - EMOTIONAL DISTRESS [None]
